FAERS Safety Report 23549192 (Version 2)
Quarter: 2024Q1

REPORT INFORMATION
  Report Type: Report from Study
  Country: ES (occurrence: ES)
  Receive Date: 20240221
  Receipt Date: 20240308
  Transmission Date: 20240410
  Serious: Yes (Hospitalization, Other)
  Sender: FDA-Public Use
  Company Number: ES-PFIZER INC-202400043892

PATIENT
  Age: 62 Year
  Sex: Male

DRUGS (5)
  1. OXALIPLATIN [Suspect]
     Active Substance: OXALIPLATIN
     Indication: Colorectal cancer metastatic
     Dosage: REPEATED EVERY 14 DAYS (WITH A MAXIMUM DURATION OF 21 DAYS)
     Route: 042
  2. LEUCOVORIN [Suspect]
     Active Substance: LEUCOVORIN\LEUCOVORIN CALCIUM
     Indication: Colorectal cancer metastatic
     Dosage: 400 MG/M2, CYCLIC, REPEATED EVERY 14 DAYS (WITH A MAXIMUM DURATION OF 21 DAYS)
     Route: 042
  3. FLUOROURACIL [Concomitant]
     Active Substance: FLUOROURACIL
     Indication: Colorectal cancer metastatic
     Dosage: 400 MG/M2, CYCLIC OVER 2-4 MINUTES
     Route: 040
  4. FLUOROURACIL [Concomitant]
     Active Substance: FLUOROURACIL
     Dosage: 2400 MG/M2, CYCLIC, CONTINUOUS INTRAVENOUS INFUSION OVER 46 H
     Route: 042
  5. BEVACIZUMAB [Concomitant]
     Active Substance: BEVACIZUMAB
     Indication: Colorectal cancer metastatic
     Dosage: INFUSION, REPEATED EVERY 14 DAYS (WITH A MAXIMUM DURATION OF 21 DAYS), CYCLIC
     Route: 042

REACTIONS (1)
  - Paresis [Not Recovered/Not Resolved]

NARRATIVE: CASE EVENT DATE: 20200805
